FAERS Safety Report 23247227 (Version 1)
Quarter: 2023Q4

REPORT INFORMATION
  Report Type: Spontaneous
  Country: GB (occurrence: GB)
  Receive Date: 20231130
  Receipt Date: 20231130
  Transmission Date: 20240109
  Serious: Yes (Hospitalization)
  Sender: FDA-Public Use
  Company Number: GB-MLMSERVICE-20231120-4666637-1

PATIENT
  Age: 65 Year
  Sex: Female

DRUGS (2)
  1. DEXAMETHASONE [Suspect]
     Active Substance: DEXAMETHASONE
     Indication: Acoustic neuroma
     Route: 065
  2. DEXAMETHASONE [Suspect]
     Active Substance: DEXAMETHASONE
     Dosage: WEANING COURSE
     Route: 065

REACTIONS (1)
  - Substance-induced psychotic disorder [Recovered/Resolved]
